FAERS Safety Report 25274211 (Version 3)
Quarter: 2025Q3

REPORT INFORMATION
  Report Type: Report from Study
  Country: US (occurrence: US)
  Receive Date: 20250506
  Receipt Date: 20250815
  Transmission Date: 20251020
  Serious: Yes (Hospitalization)
  Sender: PFIZER
  Company Number: US-PFIZER INC-202500066505

PATIENT
  Age: 34 Year
  Sex: Male

DRUGS (6)
  1. LORBRENA [Suspect]
     Active Substance: LORLATINIB
     Dosage: THREE 25MG TABLETS ORALLY DAILY
     Route: 048
     Dates: start: 20250311
  2. LORBRENA [Suspect]
     Active Substance: LORLATINIB
     Dosage: 25 MG TABLET TAKE BY MOUTH 3 TABLETS DAILY
     Route: 048
  3. ALECENSA [Concomitant]
     Active Substance: ALECTINIB HYDROCHLORIDE
  4. ELIQUIS [Concomitant]
     Active Substance: APIXABAN
  5. ENTECAVIR [Concomitant]
     Active Substance: ENTECAVIR
  6. LEVOTHYROXINE [Concomitant]
     Active Substance: LEVOTHYROXINE

REACTIONS (7)
  - Nausea [Recovering/Resolving]
  - Pneumonia [Recovering/Resolving]
  - Malaise [Recovering/Resolving]
  - Diarrhoea [Not Recovered/Not Resolved]
  - Abdominal discomfort [Not Recovered/Not Resolved]
  - Emotional disorder [Not Recovered/Not Resolved]
  - Paraesthesia [Not Recovered/Not Resolved]

NARRATIVE: CASE EVENT DATE: 20250312
